FAERS Safety Report 10393563 (Version 3)
Quarter: 2015Q3

REPORT INFORMATION
  Report Type: Spontaneous
  Country: US (occurrence: US)
  Receive Date: 20140819
  Receipt Date: 20150819
  Transmission Date: 20151125
  Serious: No
  Sender: FDA-Public Use
  Company Number: US-GILEAD-2014-0112310

PATIENT
  Age: 55 Year
  Sex: Female

DRUGS (13)
  1. FLOLAN [Suspect]
     Active Substance: EPOPROSTENOL SODIUM
     Dosage: 36.46 NG/KG/MIN, CO
     Route: 042
  2. FLOLAN [Suspect]
     Active Substance: EPOPROSTENOL SODIUM
     Dosage: 36.46 NG/KG/MIN, CO
     Route: 042
     Dates: start: 20110930
  3. FLOLAN [Suspect]
     Active Substance: EPOPROSTENOL SODIUM
     Dosage: UNK
     Route: 042
     Dates: start: 20110930
  4. FLOLAN [Suspect]
     Active Substance: EPOPROSTENOL SODIUM
     Indication: PULMONARY HYPERTENSION
     Dosage: 36.46 NG/KG, Q1MINUTE
     Route: 042
     Dates: start: 20110930
  5. FLOLAN [Suspect]
     Active Substance: EPOPROSTENOL SODIUM
     Indication: COR PULMONALE CHRONIC
     Dosage: UNK
     Route: 042
     Dates: start: 20110930
  6. FLOLAN [Suspect]
     Active Substance: EPOPROSTENOL SODIUM
     Dosage: UNK
     Route: 042
  7. FLOLAN [Suspect]
     Active Substance: EPOPROSTENOL SODIUM
     Dosage: UNK
     Dates: start: 20110930
  8. TRACLEER [Suspect]
     Active Substance: BOSENTAN
     Indication: PRODUCT USED FOR UNKNOWN INDICATION
     Dosage: 125 MG, BID
     Route: 065
  9. FLOLAN [Suspect]
     Active Substance: EPOPROSTENOL SODIUM
     Dosage: UNK
     Route: 042
     Dates: start: 20110930
  10. FLOLAN [Suspect]
     Active Substance: EPOPROSTENOL SODIUM
     Dosage: UNK
     Route: 042
     Dates: start: 20110930
  11. FLOLAN [Suspect]
     Active Substance: EPOPROSTENOL SODIUM
     Dosage: UNK
     Route: 042
  12. LETAIRIS [Suspect]
     Active Substance: AMBRISENTAN
     Indication: PULMONARY ARTERIAL HYPERTENSION
     Dosage: 5 MG, QD
     Route: 065
     Dates: start: 20140604
  13. LETAIRIS [Suspect]
     Active Substance: AMBRISENTAN
     Dosage: UNKNOWN DOSE, UNKNOWN DOSING
     Route: 065
     Dates: start: 201406

REACTIONS (7)
  - Rash pustular [Unknown]
  - Diarrhoea [Unknown]
  - Trismus [Unknown]
  - Malaise [Unknown]
  - Insomnia [Unknown]
  - Rash [Unknown]
  - Rash pruritic [Unknown]
